FAERS Safety Report 7292344-3 (Version None)
Quarter: 2011Q1

REPORT INFORMATION
  Report Type: 
  Country: None (occurrence: None)
  Receive Date: 20110202
  Receipt Date: 20110125
  Transmission Date: 20110831
  Serious: Yes (Other)
  Sender: FDA-Public Use
  Company Number: 2011SP001913

PATIENT
  Age: 65 Year
  Sex: Female

DRUGS (8)
  1. TRAZODINE [Concomitant]
  2. LOSARTAN/ HYDROCHLOORTHIAZIDE [Concomitant]
  3. OXYMETAZOLINE HCL [Suspect]
     Indication: SINUS CONGESTION
     Dosage: ;ONCE; NAS
     Route: 045
     Dates: start: 20101205
  4. OXYMETAZOLINE HCL [Suspect]
     Indication: NASOPHARYNGITIS
     Dosage: ;ONCE; NAS
     Route: 045
     Dates: start: 20101205
  5. OXYMETAZOLINE HCL [Suspect]
     Indication: INFLUENZA
     Dosage: ;ONCE; NAS
     Route: 045
     Dates: start: 20101205
  6. FAMOTIDINE [Concomitant]
  7. ZOLOFT [Concomitant]
  8. MUCINEX [Suspect]
     Indication: NASAL CONGESTION
     Dates: start: 20101205

REACTIONS (7)
  - EPISTAXIS [None]
  - SWELLING FACE [None]
  - NASAL CONGESTION [None]
  - BURNING SENSATION MUCOSAL [None]
  - ANXIETY [None]
  - HYPERTENSION [None]
  - BLISTER [None]
